FAERS Safety Report 7378563-6 (Version None)
Quarter: 2011Q1

REPORT INFORMATION
  Report Type: 
  Country: None (occurrence: None)
  Receive Date: 20110328
  Receipt Date: 20110323
  Transmission Date: 20110831
  Serious: Yes (Disabling, Other)
  Sender: FDA-Public Use
  Company Number: US-PFIZER INC-2011064685

PATIENT
  Sex: Female
  Weight: 68.03 kg

DRUGS (18)
  1. CYCLOBENZAPRINE HYDROCHLORIDE [Concomitant]
     Indication: PAIN
     Dosage: 20 MG, 3X/DAY
     Route: 048
  2. ESTROGENS [Concomitant]
     Indication: MIDDLE AGED
     Dosage: UNK
  3. LYRICA [Suspect]
     Indication: FIBROMYALGIA
  4. LYRICA [Suspect]
     Indication: ARTHRITIS
  5. THYROID TAB [Concomitant]
     Dosage: 1 GRAIN , 1X/DAY
     Route: 048
  6. NEXIUM [Concomitant]
     Dosage: 40 MG, 1X/DAY
     Route: 048
  7. VITAMIN B COMPLEX CAP [Concomitant]
     Dosage: UNK
  8. DARVOCET [Concomitant]
     Indication: PAIN
     Dosage: 15MG 1 TO 2 TABLETS EVERY 4 HOURS
     Route: 048
  9. ETHYL CHLORIDE [Concomitant]
     Indication: MUSCLE DISORDER
     Dosage: UNK
  10. EFFEXOR XR [Suspect]
     Indication: BIPOLAR I DISORDER
     Dosage: 150 MG, 2X/DAY
     Route: 048
  11. LEVOTHYROXINE [Concomitant]
     Dosage: 125 UG, 1X/DAY
     Route: 048
  12. DICYCLOMINE HYDROCHLORIDE [Concomitant]
     Indication: DYSPEPSIA
     Dosage: 20 MG, AS NEEDED
     Route: 048
  13. DICYCLOMINE HYDROCHLORIDE [Concomitant]
     Indication: MUSCLE SPASMS
  14. VITAMIN D [Concomitant]
     Dosage: UNK
  15. LYRICA [Suspect]
     Indication: CHRONIC FATIGUE SYNDROME
  16. LYRICA [Suspect]
     Indication: OSTEOPOROSIS
  17. CAMPHOR W/MENTHOL [Concomitant]
     Indication: MUSCLE DISORDER
     Dosage: UNK
  18. LYRICA [Suspect]
     Indication: MYOFASCIAL PAIN SYNDROME
     Dosage: 75 MG, 1X/DAY
     Route: 048
     Dates: start: 20100501, end: 20110201

REACTIONS (9)
  - FALL [None]
  - GAIT DISTURBANCE [None]
  - COORDINATION ABNORMAL [None]
  - NERVOUSNESS [None]
  - BLOOD CHOLESTEROL INCREASED [None]
  - HYPOREFLEXIA [None]
  - ALTERED VISUAL DEPTH PERCEPTION [None]
  - ROAD TRAFFIC ACCIDENT [None]
  - WEIGHT FLUCTUATION [None]
